FAERS Safety Report 9097279 (Version 1)
Quarter: 2013Q1

REPORT INFORMATION
  Report Type: Spontaneous
  Country: FR (occurrence: FR)
  Receive Date: 20130212
  Receipt Date: 20130212
  Transmission Date: 20140127
  Serious: Yes (Life-Threatening, Hospitalization)
  Sender: FDA-Public Use
  Company Number: PHHY2013FR013562

PATIENT
  Age: 63 Year
  Sex: Male

DRUGS (1)
  1. AMOXICILLIN+CLAVULANATE [Suspect]
     Indication: ANTIBIOTIC PROPHYLAXIS
     Dosage: 2 G, UNK
     Route: 042
     Dates: start: 20120731, end: 20120731

REACTIONS (4)
  - Ventricular fibrillation [Recovered/Resolved]
  - Anaphylactoid shock [Not Recovered/Not Resolved]
  - Bronchospasm [Recovered/Resolved]
  - Generalised erythema [Recovered/Resolved]
